FAERS Safety Report 14628213 (Version 1)
Quarter: 2018Q1

REPORT INFORMATION
  Report Type: Spontaneous
  Country: US (occurrence: US)
  Receive Date: 20180312
  Receipt Date: 20180312
  Transmission Date: 20180509
  Serious: No
  Sender: FDA-Public Use
  Company Number: US-ALLERGAN-1730591US

PATIENT
  Age: 67 Year
  Sex: Female
  Weight: 47.3 kg

DRUGS (8)
  1. TYLENOL [Concomitant]
     Active Substance: ACETAMINOPHEN
     Indication: BACK PAIN
     Dosage: 250 MG, BID (MORNING AND AFTERNOON)
     Route: 065
     Dates: start: 1980
  2. CALCIUM [Concomitant]
     Active Substance: CALCIUM
     Indication: OSTEOPOROSIS
     Dosage: 1000 UNITS, QD
     Route: 065
     Dates: start: 1995
  3. TYLENOL [Concomitant]
     Active Substance: ACETAMINOPHEN
     Indication: ARTHRALGIA
  4. MAGNESIUM [Concomitant]
     Active Substance: MAGNESIUM
     Indication: MUSCLE DISORDER
     Dosage: 400 MG, QD
     Route: 065
     Dates: start: 2007
  5. VITAMIN D3 [Concomitant]
     Active Substance: CHOLECALCIFEROL
     Indication: BONE DISORDER
     Dosage: 400 UNITS, QD
     Route: 065
     Dates: start: 2002
  6. TRAMADOL. [Concomitant]
     Active Substance: TRAMADOL
     Indication: BACK PAIN
     Dosage: 250 MG, QHS
     Dates: start: 2008
  7. ESTRACE [Suspect]
     Active Substance: ESTRADIOL
     Indication: PRODUCT USED FOR UNKNOWN INDICATION
     Dosage: UNK UNK, BI-WEEKLY
     Route: 067
     Dates: start: 201610, end: 201703
  8. ARMOUR THYROID [Concomitant]
     Active Substance: THYROID, PORCINE
     Indication: HYPOTHYROIDISM
     Dosage: 60 MG, QD
     Route: 065
     Dates: start: 1999

REACTIONS (5)
  - Urinary tract infection [Recovered/Resolved]
  - Dyspareunia [Unknown]
  - Vaginal haemorrhage [Not Recovered/Not Resolved]
  - Drug ineffective [Unknown]
  - Vulvovaginal dryness [Not Recovered/Not Resolved]

NARRATIVE: CASE EVENT DATE: 201611
